FAERS Safety Report 7086436-1 (Version None)
Quarter: 2010Q4

REPORT INFORMATION
  Report Type: 
  Country: None (occurrence: None)
  Receive Date: 20101105
  Receipt Date: 20101028
  Transmission Date: 20110411
  Serious: Yes (Other)
  Sender: FDA-Public Use
  Company Number: GB-ABBOTT-10P-167-0638058-01

PATIENT
  Sex: Female
  Weight: 46 kg

DRUGS (11)
  1. HUMIRA [Suspect]
     Indication: CROHN'S DISEASE
     Dosage: BASELINE
     Route: 058
     Dates: start: 20090201, end: 20091201
  2. HUMIRA [Suspect]
     Route: 058
     Dates: end: 20091201
  3. SALBUTAMOL [Concomitant]
     Indication: ASTHMA
     Dates: start: 20080201
  4. BECLOMETASONE DIPROPIONATE [Concomitant]
     Indication: ASTHMA
     Dates: start: 20080201
  5. FERROUS SULFATE [Concomitant]
     Indication: BLOOD IRON DECREASED
     Dates: start: 20060831
  6. CALCHEW [Concomitant]
     Indication: BLOOD CALCIUM DECREASED
     Dates: start: 20070510
  7. IBUPROFEN [Concomitant]
     Indication: PAIN
  8. IBUPROFEN [Concomitant]
     Indication: INFLAMMATION
  9. IBUPROFEN [Concomitant]
     Indication: CROHN'S DISEASE
  10. PARACETAMOL [Concomitant]
     Indication: PAIN
  11. PARACETAMOL [Concomitant]
     Indication: CROHN'S DISEASE

REACTIONS (2)
  - ANORECTAL DISORDER [None]
  - TRANSFUSION REACTION [None]
